FAERS Safety Report 7596390-1 (Version None)
Quarter: 2011Q3

REPORT INFORMATION
  Report Type: 
  Country: None (occurrence: None)
  Receive Date: 20110707
  Receipt Date: 20110701
  Transmission Date: 20111222
  Serious: Yes (Hospitalization, Other)
  Sender: FDA-Public Use
  Company Number: US-MERCK-1008USA04022

PATIENT
  Age: 60 Year
  Sex: Female

DRUGS (11)
  1. CENTRUM SILVER [Concomitant]
     Dosage: FOR 10 YEARS
     Route: 048
     Dates: start: 19910101
  2. HORMONES (UNSPECIFIED) [Concomitant]
     Route: 048
     Dates: start: 19910101
  3. DIOVAN [Concomitant]
     Indication: HYPERTENSION
     Route: 048
     Dates: start: 19950101, end: 20100101
  4. SYNTHROID [Concomitant]
     Indication: HYPOTHYROIDISM
     Route: 048
     Dates: start: 19910101
  5. FOSAMAX PLUS D [Suspect]
     Indication: OSTEOPOROSIS
     Route: 048
     Dates: start: 20070101, end: 20100101
  6. FOSAMAX [Suspect]
     Indication: OSTEOPENIA
     Route: 048
     Dates: start: 20070101, end: 20100101
  7. HYDROCHLOROTHIAZIDE [Concomitant]
     Route: 048
  8. ACTONEL [Suspect]
     Indication: OSTEOPOROSIS
     Route: 048
     Dates: start: 20100101
  9. FOSAMAX [Suspect]
     Indication: OSTEOPOROSIS
     Route: 048
     Dates: start: 20070101, end: 20100101
  10. LIPITOR [Concomitant]
     Indication: HYPERCHOLESTEROLAEMIA
     Route: 048
     Dates: start: 20020101, end: 20100101
  11. FOSAMAX PLUS D [Suspect]
     Indication: OSTEOPENIA
     Route: 048
     Dates: start: 20070101, end: 20100101

REACTIONS (13)
  - ARTHRALGIA [None]
  - BONE SCAN [None]
  - FALL [None]
  - PAIN [None]
  - BONE DISORDER [None]
  - TENOSYNOVITIS STENOSANS [None]
  - DRUG INTOLERANCE [None]
  - FRACTURE [None]
  - FEMUR FRACTURE [None]
  - OSTEOARTHRITIS [None]
  - ANAEMIA POSTOPERATIVE [None]
  - CONSTIPATION [None]
  - BACK PAIN [None]
